FAERS Safety Report 17157838 (Version 1)
Quarter: 2019Q4

REPORT INFORMATION
  Report Type: Spontaneous
  Country: US (occurrence: US)
  Receive Date: 20191213
  Receipt Date: 20191213
  Transmission Date: 20200122
  Serious: Yes (Hospitalization)
  Sender: FDA-Public Use
  Company Number: None

PATIENT
  Age: 61 Year
  Sex: Male
  Weight: 108.6 kg

DRUGS (4)
  1. RIVAROXABAN [Suspect]
     Active Substance: RIVAROXABAN
     Indication: DEVICE RELATED THROMBOSIS
     Route: 048
     Dates: start: 20150508
  2. RIVAROXABAN [Suspect]
     Active Substance: RIVAROXABAN
     Indication: DEEP VEIN THROMBOSIS
     Route: 048
     Dates: start: 20150508
  3. LOSARTAN 100MG DAILY [Concomitant]
     Active Substance: LOSARTAN
  4. ATENOLOL/CHLORTHALIDONE 50/25MG DAILY [Concomitant]

REACTIONS (2)
  - Gastrointestinal haemorrhage [None]
  - Pneumonia [None]

NARRATIVE: CASE EVENT DATE: 20150529
